FAERS Safety Report 18413556 (Version 1)
Quarter: 2020Q4

REPORT INFORMATION
  Report Type: Spontaneous
  Country: CH (occurrence: CH)
  Receive Date: 20201022
  Receipt Date: 20201022
  Transmission Date: 20210114
  Serious: Yes (Life-Threatening)
  Sender: FDA-Public Use
  Company Number: CH-TEVA-2020-CH-1840473

PATIENT
  Age: 50 Year
  Sex: Female

DRUGS (11)
  1. VENLAFAXINE [Suspect]
     Active Substance: VENLAFAXINE HYDROCHLORIDE
     Indication: DEPRESSION
     Route: 048
     Dates: start: 20190507
  2. LOSARTAN. [Concomitant]
     Active Substance: LOSARTAN
  3. ZENZI GYNIAL [Concomitant]
     Dates: start: 20191126
  4. ATORVASTATIN [Concomitant]
     Active Substance: ATORVASTATIN
     Route: 048
  5. TRITTICO [Concomitant]
     Active Substance: TRAZODONE HYDROCHLORIDE
     Dates: start: 20200325
  6. CONDROSULF [Concomitant]
     Active Substance: SODIUM CHONDROITIN SULFATE
     Route: 048
     Dates: start: 20190325
  7. TRANSIPEG [Concomitant]
     Dates: start: 20191003
  8. ESOMEPRAZOL [Concomitant]
     Active Substance: ESOMEPRAZOLE
     Route: 048
     Dates: start: 20190325
  9. JANUMET [Concomitant]
     Active Substance: METFORMIN HYDROCHLORIDE\SITAGLIPTIN PHOSPHATE
     Route: 048
  10. ARCOXIA [Concomitant]
     Active Substance: ETORICOXIB
     Dates: start: 20190325
  11. NEBIVOLOL. [Concomitant]
     Active Substance: NEBIVOLOL
     Route: 048
     Dates: start: 20190325

REACTIONS (1)
  - Paranoia [Not Recovered/Not Resolved]

NARRATIVE: CASE EVENT DATE: 20200918
